FAERS Safety Report 4485728-X (Version None)
Quarter: 2004Q4

REPORT INFORMATION
  Report Type: 
  Country: None (occurrence: None)
  Receive Date: 20041026
  Receipt Date: 20041025
  Transmission Date: 20050328
  Serious: Yes (Hospitalization)
  Sender: FDA-Public Use
  Company Number: FR-GLAXOSMITHKLINE-B0349140A

PATIENT
  Age: 64 Year
  Sex: Female
  Weight: 50 kg

DRUGS (5)
  1. ZYBAN [Suspect]
     Dosage: 150MG TWICE PER DAY
     Route: 048
     Dates: start: 20040909, end: 20040923
  2. ATARAX [Suspect]
     Dosage: 25MG PER DAY
     Route: 048
     Dates: start: 20040909, end: 20040923
  3. ALPRAZOLAM [Concomitant]
     Route: 065
  4. EQUANIL [Concomitant]
     Route: 065
  5. STILNOX [Concomitant]
     Route: 065

REACTIONS (4)
  - AGITATION [None]
  - CONFUSIONAL STATE [None]
  - INCOHERENT [None]
  - INSOMNIA [None]
